FAERS Safety Report 9363564 (Version 5)
Quarter: 2013Q3

REPORT INFORMATION
  Report Type: Spontaneous
  Country: DE (occurrence: DE)
  Receive Date: 20130624
  Receipt Date: 20130828
  Transmission Date: 20140515
  Serious: Yes (Other)
  Sender: FDA-Public Use
  Company Number: PHHY2013DE063599

PATIENT
  Age: 26 Year
  Sex: Female

DRUGS (4)
  1. SANDOSTATIN LAR [Suspect]
     Indication: CUSHING^S SYNDROME
     Dosage: 10 MG, EVERY 4 WEEKS 1 SINGLE DOSE
     Route: 058
     Dates: start: 201211, end: 201304
  2. SANDOSTATIN LAR [Suspect]
     Indication: OFF LABEL USE
     Dosage: 20 MG, EVERY 4 WEEKS 1 SINGLE DOSE
     Route: 058
     Dates: start: 201304, end: 201307
  3. L-THYROXIN [Concomitant]
     Indication: HYPOTHYROIDISM
     Dosage: 150 UG, DAILY
     Route: 048
     Dates: start: 2009
  4. ANGELIQ [Concomitant]
     Dosage: 1MG/2MG, DAILY
     Route: 048
     Dates: start: 200909

REACTIONS (3)
  - Cholelithiasis [Not Recovered/Not Resolved]
  - Incorrect route of drug administration [Unknown]
  - Drug ineffective [Not Recovered/Not Resolved]
